FAERS Safety Report 4528649-6 (Version None)
Quarter: 2004Q4

REPORT INFORMATION
  Report Type: 
  Country: None (occurrence: None)
  Receive Date: 20041216
  Receipt Date: 20041026
  Transmission Date: 20050328
  Serious: Yes (Other)
  Sender: FDA-Public Use
  Company Number: US-GLAXOSMITHKLINE-A0537141A

PATIENT
  Sex: Female

DRUGS (1)
  1. VIVARIN [Suspect]
     Indication: ILL-DEFINED DISORDER
     Route: 048

REACTIONS (3)
  - DEPENDENCE [None]
  - DRUG ABUSER [None]
  - OVERDOSE [None]
